FAERS Safety Report 9483839 (Version 2)
Quarter: 2013Q3

REPORT INFORMATION
  Report Type: Spontaneous
  Country: CA (occurrence: CA)
  Receive Date: 20130828
  Receipt Date: 20130828
  Transmission Date: 20140515
  Serious: Yes (Other)
  Sender: FDA-Public Use
  Company Number: CA-AMGEN-KDL250548

PATIENT
  Age: 63 Year
  Sex: Female

DRUGS (1)
  1. ENBREL [Suspect]
     Indication: RHEUMATOID ARTHRITIS
     Dosage: UNK UNK, QWK
     Route: 065
     Dates: start: 20070924

REACTIONS (15)
  - Fungal infection [Not Recovered/Not Resolved]
  - Eye infection [Not Recovered/Not Resolved]
  - Sinusitis [Not Recovered/Not Resolved]
  - Cystitis [Not Recovered/Not Resolved]
  - Ear infection [Recovered/Resolved]
  - Wheezing [Unknown]
  - Lymphadenopathy [Unknown]
  - Injection site bruising [Unknown]
  - Chest discomfort [Unknown]
  - Injection site haemorrhage [Unknown]
  - Injection site swelling [Unknown]
  - Injection site pruritus [Unknown]
  - Injection site erythema [Unknown]
  - Injection site warmth [Unknown]
  - Injection site reaction [Unknown]
